FAERS Safety Report 12646472 (Version 2)
Quarter: 2016Q3

REPORT INFORMATION
  Report Type: Spontaneous
  Country: US (occurrence: US)
  Receive Date: 20160812
  Receipt Date: 20160923
  Transmission Date: 20161109
  Serious: Yes (Other)
  Sender: FDA-Public Use
  Company Number: US-009507513-1608USA004506

PATIENT
  Sex: Female
  Weight: 82.99 kg

DRUGS (1)
  1. NEXPLANON [Suspect]
     Active Substance: ETONOGESTREL
     Indication: CONTRACEPTION
     Dosage: 1 INSERTED DEVICE FOR 3 YEARS
     Route: 059
     Dates: start: 20141125, end: 20160802

REACTIONS (2)
  - Blindness [Recovered/Resolved]
  - Hydrocephalus [Recovered/Resolved]

NARRATIVE: CASE EVENT DATE: 2015
